FAERS Safety Report 7088850-7 (Version None)
Quarter: 2010Q4

REPORT INFORMATION
  Report Type: 
  Country: None (occurrence: None)
  Receive Date: 20101108
  Receipt Date: 20101102
  Transmission Date: 20110411
  Serious: Yes (Hospitalization)
  Sender: FDA-Public Use
  Company Number: DK-PFIZER INC-2010043099

PATIENT
  Age: 72 Year
  Sex: Female

DRUGS (2)
  1. CELEBRA [Suspect]
     Dosage: 200 MG, 2X/DAY
     Route: 048
  2. CITALOPRAM [Suspect]
     Indication: DEPRESSION
     Dosage: 20 MG, UNK
     Route: 048

REACTIONS (3)
  - DIZZINESS [None]
  - DRUG INTERACTION [None]
  - HEPATITIS TOXIC [None]
